FAERS Safety Report 5377755-5 (Version None)
Quarter: 2007Q2

REPORT INFORMATION
  Report Type: 
  Country: None (occurrence: None)
  Receive Date: 20070629
  Receipt Date: 20070619
  Transmission Date: 20071010
  Serious: Yes (Congenital Anomaly)
  Sender: FDA-Public Use
  Company Number: 157757ISR

PATIENT

DRUGS (1)
  1. FLUOXETINE [Suspect]
     Dosage: (20 MG), ORAL
     Route: 048
     Dates: start: 20010402

REACTIONS (2)
  - AUTISM [None]
  - DRUG EXPOSURE DURING PREGNANCY [None]
